FAERS Safety Report 4886118-8 (Version None)
Quarter: 2006Q1

REPORT INFORMATION
  Report Type: 
  Country: None (occurrence: None)
  Receive Date: 20060118
  Receipt Date: 20060118
  Transmission Date: 20060701
  Serious: Yes (Life-Threatening, Hospitalization, Disabling, Other)
  Sender: FDA-Public Use
  Company Number: None

PATIENT
  Age: 51 Year
  Sex: Female
  Weight: 116.5744 kg

DRUGS (6)
  1. CORICIDIN D TABLETS [Suspect]
     Indication: NASOPHARYNGITIS
     Dosage: ORAL
     Route: 048
  2. TAVIST-D [Concomitant]
  3. COMTREX [Concomitant]
  4. TRIAMINIC SRT [Concomitant]
  5. ANTIDEPRESSANTS (NOS) [Concomitant]
  6. ANTIHYPERTENSIVE AGENT (NOS) [Concomitant]

REACTIONS (8)
  - CEREBRAL HAEMORRHAGE [None]
  - DIZZINESS [None]
  - FALL [None]
  - GAIT DISTURBANCE [None]
  - HYPERTENSION [None]
  - INJURY [None]
  - PANCREATITIS ACUTE [None]
  - PNEUMONIA [None]
